FAERS Safety Report 8811890 (Version 1)
Quarter: 2012Q4

REPORT INFORMATION
  Report Type: Report from Study
  Country: UA (occurrence: UA)
  Receive Date: 20120927
  Receipt Date: 20120927
  Transmission Date: 20130627
  Serious: Yes (Other)
  Sender: FDA-Public Use
  Company Number: UA-UCBSA-067344

PATIENT
  Age: 66 Year
  Sex: Female
  Weight: 76 kg

DRUGS (3)
  1. CERTOLIZUMAB PEGOL [Suspect]
     Indication: CROHN^S DISEASE
     Route: 058
     Dates: start: 20050321
  2. CARBAMAZEPINE [Concomitant]
     Indication: TRIGEMINAL NEURALGIA
     Route: 048
     Dates: start: 20100315, end: 2010
  3. ENALAPRIL [Concomitant]
     Indication: HYPERTENSION
     Route: 048
     Dates: start: 20071121

REACTIONS (1)
  - Tracheobronchitis [Recovered/Resolved]
